FAERS Safety Report 15779752 (Version 2)
Quarter: 2019Q1

REPORT INFORMATION
  Report Type: Spontaneous
  Country: IT (occurrence: IT)
  Receive Date: 20190101
  Receipt Date: 20190122
  Transmission Date: 20190417
  Serious: Yes (Hospitalization, Other)
  Sender: FDA-Public Use
  Company Number: IT-AUROBINDO-AUR-APL-2018-063760

PATIENT
  Age: 84 Year
  Sex: Female

DRUGS (2)
  1. RISPERIDONE. [Suspect]
     Active Substance: RISPERIDONE
     Indication: ABNORMAL BEHAVIOUR
     Dosage: 10 MILLIGRAM, DAILY
     Route: 065
  2. RISPERIDONE. [Suspect]
     Active Substance: RISPERIDONE
     Dosage: UNK, STARTED AT UNKNOWN DOSE WITH INCREASING DOSAGE
     Route: 065

REACTIONS (2)
  - Akathisia [Recovering/Resolving]
  - Condition aggravated [Recovering/Resolving]
